FAERS Safety Report 7235399-4 (Version None)
Quarter: 2011Q1

REPORT INFORMATION
  Report Type: 
  Country: None (occurrence: None)
  Receive Date: 20110120
  Receipt Date: 20110111
  Transmission Date: 20110831
  Serious: No
  Sender: FDA-Public Use
  Company Number: US-JNJFOC-20110102951

PATIENT
  Sex: Female
  Weight: 100.25 kg

DRUGS (3)
  1. LORAZEPAM [Concomitant]
     Route: 048
  2. INVEGA SUSTENNA [Suspect]
     Indication: SCHIZOPHRENIA
     Route: 030
  3. INVEGA SUSTENNA [Suspect]
     Route: 030

REACTIONS (2)
  - INJECTION SITE PAIN [None]
  - INJECTION SITE REACTION [None]
